FAERS Safety Report 8621790-8 (Version None)
Quarter: 2012Q3

REPORT INFORMATION
  Report Type: 
  Country: None (occurrence: None)
  Receive Date: 20120821
  Receipt Date: 20120821
  Transmission Date: 20120928
  Serious: Yes (Other)
  Sender: FDA-Public Use
  Company Number: None

PATIENT
  Sex: Female
  Weight: 95.2554 kg

DRUGS (1)
  1. VENLAFAXINE [Suspect]
     Indication: INSOMNIA
     Dosage: 37.5 ONCE A DAY PO 6 1/2 WEEKS
     Route: 048
     Dates: start: 20120627, end: 20120816

REACTIONS (2)
  - RETINAL HAEMORRHAGE [None]
  - RETINAL TEAR [None]
